FAERS Safety Report 9365852 (Version 3)
Quarter: 2013Q3

REPORT INFORMATION
  Report Type: Spontaneous
  Country: JP (occurrence: JP)
  Receive Date: 20130625
  Receipt Date: 20130816
  Transmission Date: 20140515
  Serious: Yes (Hospitalization)
  Sender: FDA-Public Use
  Company Number: PHHY2013JP064687

PATIENT
  Sex: Male

DRUGS (4)
  1. TEGRETOL [Suspect]
     Indication: SCHIZOPHRENIA
     Dosage: 200 MG DAILY
     Route: 048
  2. TEGRETOL [Suspect]
     Dosage: UNK UKN, UNK
  3. DEPAKENE [Suspect]
     Indication: SCHIZOPHRENIA
     Dosage: 400 MG, DAILY
     Route: 048
     Dates: start: 20130621
  4. DEPAKENE [Suspect]
     Dosage: UNK UKN, UNK

REACTIONS (1)
  - Status epilepticus [Recovered/Resolved]
